FAERS Safety Report 5498140-1 (Version None)
Quarter: 2007Q4

REPORT INFORMATION
  Report Type: 
  Country: None (occurrence: None)
  Receive Date: 20071025
  Receipt Date: 20071018
  Transmission Date: 20080405
  Serious: No
  Sender: FDA-Public Use
  Company Number: US-BOEHRINGER INGELHEIM PHARMACEUTICALS, INC.-2007-BP-22139BP

PATIENT
  Sex: Female

DRUGS (2)
  1. ZANTAC 150 [Suspect]
     Indication: ULCER
     Route: 048
     Dates: start: 20070901
  2. NORVASC [Concomitant]
     Indication: HYPERTENSION
     Route: 048

REACTIONS (1)
  - EPISTAXIS [None]
